FAERS Safety Report 9301345 (Version 1)
Quarter: 2013Q2

REPORT INFORMATION
  Report Type: Spontaneous
  Country: FR (occurrence: FR)
  Receive Date: 20130521
  Receipt Date: 20130521
  Transmission Date: 20140414
  Serious: Yes (Hospitalization)
  Sender: FDA-Public Use
  Company Number: FR-VERTEX PHARMACEUTICALS INC-2013-006233

PATIENT
  Age: 49 Year
  Sex: Male

DRUGS (3)
  1. INCIVO [Suspect]
     Indication: HEPATITIS C
     Route: 048
     Dates: start: 20120531, end: 20120817
  2. PEGASYS [Suspect]
     Indication: HEPATITIS C
     Route: 051
     Dates: start: 20120531
  3. COPEGUS [Suspect]
     Indication: HEPATITIS C
     Route: 048
     Dates: start: 20120531

REACTIONS (1)
  - Dyspnoea [Not Recovered/Not Resolved]
